FAERS Safety Report 11925141 (Version 1)
Quarter: 2016Q1

REPORT INFORMATION
  Report Type: Report from Study
  Country: IE (occurrence: IE)
  Receive Date: 20160118
  Receipt Date: 20160118
  Transmission Date: 20160526
  Serious: Yes (Death, Other)
  Sender: FDA-Public Use
  Company Number: IE-AMGEN-IRLSL2016004060

PATIENT
  Sex: Male

DRUGS (8)
  1. VERTIGON                           /00013304/ [Concomitant]
     Active Substance: PROCHLORPERAZINE MALEATE
     Dosage: 16 MG, QD
  2. SALAMOL                            /00139501/ [Concomitant]
     Dosage: 1 MG, BD
  3. SPIRIVA [Concomitant]
     Active Substance: TIOTROPIUM BROMIDE MONOHYDRATE
     Dosage: 18 MG, BD
  4. SUDAFED [Concomitant]
     Active Substance: PSEUDOEPHEDRINE HYDROCHLORIDE
     Dosage: 1 MG, UNK
  5. NEULASTA [Suspect]
     Active Substance: PEGFILGRASTIM
     Indication: LUNG NEOPLASM MALIGNANT
     Dosage: 6 MG, AS PER CHEMO RX
     Route: 058
     Dates: start: 20150513
  6. FLUTIFORM [Concomitant]
     Active Substance: FLUTICASONE PROPIONATE\FORMOTEROL FUMARATE
     Dosage: 1 MG, BD
  7. ZOFRAN [Concomitant]
     Active Substance: ONDANSETRON HYDROCHLORIDE
     Dosage: 8 MG, BD
  8. MAXOLON [Concomitant]
     Active Substance: METOCLOPRAMIDE HYDROCHLORIDE
     Dosage: 1 MG, AS NECESSARY

REACTIONS (1)
  - Death [Fatal]
